FAERS Safety Report 5220993-2 (Version None)
Quarter: 2007Q1

REPORT INFORMATION
  Report Type: 
  Country: None (occurrence: None)
  Receive Date: 20070126
  Receipt Date: 20070117
  Transmission Date: 20070707
  Serious: Yes (Hospitalization)
  Sender: FDA-Public Use
  Company Number: US-ROCHE-467350

PATIENT
  Age: 22 Year
  Sex: Male
  Weight: 63.5 kg

DRUGS (3)
  1. ACCUTANE [Suspect]
     Indication: ACNE
     Dosage: THERAPY DATE REPORTED AS 1983 OR 1984 ESTIMATED.
     Route: 048
     Dates: start: 19830615, end: 19830615
  2. BENZOYL PEROXIDE [Concomitant]
     Indication: ACNE
     Route: 061
  3. SALICYLIC ACID [Concomitant]
     Indication: ACNE
     Route: 061

REACTIONS (17)
  - ANAEMIA [None]
  - ANXIETY [None]
  - ARTHRITIS [None]
  - BLOOD CHOLESTEROL INCREASED [None]
  - CEREBROVASCULAR ACCIDENT [None]
  - COLITIS [None]
  - COLITIS ULCERATIVE [None]
  - CROHN'S DISEASE [None]
  - DEPRESSION [None]
  - DIVERTICULITIS [None]
  - INFLAMMATORY BOWEL DISEASE [None]
  - INTESTINAL HAEMORRHAGE [None]
  - INTESTINAL OBSTRUCTION [None]
  - INTESTINAL PERFORATION [None]
  - IRRITABLE BOWEL SYNDROME [None]
  - MORBID THOUGHTS [None]
  - PROCTITIS [None]
